FAERS Safety Report 18974026 (Version 1)
Quarter: 2021Q1

REPORT INFORMATION
  Report Type: Report from Study
  Country: US (occurrence: US)
  Receive Date: 20210305
  Receipt Date: 20210305
  Transmission Date: 20210420
  Serious: Yes (Other)
  Sender: FDA-Public Use
  Company Number: US-JNJFOC-20210243178

PATIENT
  Age: 27 Year
  Sex: Female
  Weight: 57.98 kg

DRUGS (4)
  1. SPRAVATO [Suspect]
     Active Substance: ESKETAMINE
     Dosage: 84 MG, 14 TOTAL DOSES
     Dates: start: 20201113, end: 20210118
  2. SPRAVATO [Suspect]
     Active Substance: ESKETAMINE
     Dosage: 112 MG, 8 TOTAL DOSES
     Dates: start: 20210120, end: 20210211
  3. SPRAVATO [Suspect]
     Active Substance: ESKETAMINE
     Indication: DEPRESSION
     Dosage: 56 MG, 1 TOTAL DOSE
     Dates: start: 20201111, end: 20201111
  4. SPRAVATO [Suspect]
     Active Substance: ESKETAMINE
     Dosage: 112 MG, 8 TOTAL DOSES ; CURRENT TREATMENT SESSION
     Dates: start: 20210223, end: 20210223

REACTIONS (3)
  - Blood pressure increased [Recovered/Resolved]
  - Dissociation [Recovered/Resolved]
  - Sedation [Recovered/Resolved]

NARRATIVE: CASE EVENT DATE: 20210223
